FAERS Safety Report 24738903 (Version 2)
Quarter: 2024Q4

REPORT INFORMATION
  Report Type: Report from Study
  Country: CA (occurrence: CA)
  Receive Date: 20241216
  Receipt Date: 20241224
  Transmission Date: 20250115
  Serious: Yes (Other)
  Sender: REGENERON
  Company Number: CA-BAYER-2024A169578

PATIENT
  Sex: Female

DRUGS (2)
  1. EYLEA [Suspect]
     Active Substance: AFLIBERCEPT
     Indication: Diabetic retinal oedema
     Dosage: UNK, RIGHT EYE, 40MG/ML
     Dates: start: 20210531, end: 20210531
  2. EYLEA [Suspect]
     Active Substance: AFLIBERCEPT
     Dosage: UNK, RIGHT EYE; 40MG/ML
     Dates: start: 20240412

REACTIONS (4)
  - Retinal haemorrhage [Not Recovered/Not Resolved]
  - Urethral stent insertion [Unknown]
  - Foot fracture [Unknown]
  - Wrist fracture [Unknown]

NARRATIVE: CASE EVENT DATE: 20211001
